FAERS Safety Report 11115019 (Version 1)
Quarter: 2015Q2

REPORT INFORMATION
  Report Type: Spontaneous
  Country: HK (occurrence: None)
  Receive Date: 20150514
  Receipt Date: 20150514
  Transmission Date: 20150821
  Serious: Yes (Hospitalization)
  Sender: FDA-Public Use
  Company Number: None

PATIENT
  Age: 11 Day
  Sex: Female
  Weight: 57 kg

DRUGS (1)
  1. PANADOL COLD AND FLU [Suspect]
     Active Substance: ACETAMINOPHEN\CHLORPHENIRAMINE MALEATE\PHENYLEPHRINE HYDROCHLORIDE
     Indication: NASOPHARYNGITIS
     Dosage: 2 PILLS
     Route: 048

REACTIONS (5)
  - Hyperhidrosis [None]
  - Chest discomfort [None]
  - Dyspnoea [None]
  - Palpitations [None]
  - Back pain [None]

NARRATIVE: CASE EVENT DATE: 20150513
